FAERS Safety Report 23101612 (Version 1)
Quarter: 2023Q4

REPORT INFORMATION
  Report Type: Spontaneous
  Country: GR (occurrence: GR)
  Receive Date: 20231025
  Receipt Date: 20231025
  Transmission Date: 20240109
  Serious: Yes (Other)
  Sender: FDA-Public Use
  Company Number: GR-CELLTRION INC.-2023GR020562

PATIENT

DRUGS (2)
  1. INFLIXIMAB [Suspect]
     Active Substance: INFLIXIMAB
     Indication: Colitis ulcerative
     Dosage: 2 IV INFUSIONS GIVEN 2 WEEKS APART
     Route: 042
     Dates: start: 202305
  2. INFLIXIMAB [Suspect]
     Active Substance: INFLIXIMAB
     Indication: Colitis ulcerative
     Dosage: 1 DOSAGE FORM, Q2WEEKS
     Route: 058

REACTIONS (4)
  - Haematochezia [Unknown]
  - Pain [Unknown]
  - Diarrhoea [Unknown]
  - Therapy partial responder [Unknown]
